FAERS Safety Report 24377899 (Version 1)
Quarter: 2024Q3

REPORT INFORMATION
  Report Type: Spontaneous
  Country: US (occurrence: None)
  Receive Date: 20240928
  Receipt Date: 20240928
  Transmission Date: 20241016
  Serious: Yes (Hospitalization)
  Sender: Public
  Company Number: None

PATIENT
  Age: 62 Year
  Sex: Female
  Weight: 63.9 kg

DRUGS (5)
  1. GABAPENTIN [Suspect]
     Active Substance: GABAPENTIN
     Indication: Nerve compression
     Dosage: OTHER QUANTITY : 1 CAPSULE(S);?FREQUENCY : AT BEDTIME;?
     Route: 048
  2. LOVASTATIN [Concomitant]
  3. LINZESS [Concomitant]
     Active Substance: LINACLOTIDE
  4. triameterene-tctz [Concomitant]
  5. albuterol [Concomitant]

REACTIONS (7)
  - Swelling [None]
  - Pain in extremity [None]
  - Gait inability [None]
  - Abdominal pain upper [None]
  - Pain in extremity [None]
  - Chest pain [None]
  - Dyspnoea [None]

NARRATIVE: CASE EVENT DATE: 20240810
